FAERS Safety Report 10687366 (Version 4)
Quarter: 2015Q1

REPORT INFORMATION
  Report Type: Report from Study
  Country: AU (occurrence: AU)
  Receive Date: 20150102
  Receipt Date: 20150213
  Transmission Date: 20150720
  Serious: Yes (Other)
  Sender: FDA-Public Use
  Company Number: PHHY2014AU078816

PATIENT
  Age: 21 Year
  Sex: Female
  Weight: 67 kg

DRUGS (9)
  1. SOM230 [Suspect]
     Active Substance: PASIREOTIDE
     Indication: ACROMEGALY
     Dosage: 40 MG, EVERY 28 DAYS
     Route: 030
     Dates: start: 201403, end: 201407
  2. EFFEXOR XR [Concomitant]
     Active Substance: VENLAFAXINE HYDROCHLORIDE
     Indication: PRODUCT USED FOR UNKNOWN INDICATION
     Route: 065
  3. MAREVAN [Concomitant]
     Active Substance: WARFARIN SODIUM
     Indication: PRODUCT USED FOR UNKNOWN INDICATION
     Route: 065
  4. OXYCONTIN [Concomitant]
     Active Substance: OXYCODONE HYDROCHLORIDE
     Indication: PRODUCT USED FOR UNKNOWN INDICATION
     Route: 065
  5. DESOGESTREL AND ETHINYL ESTRADIOL [Concomitant]
     Active Substance: DESOGESTREL\ETHINYL ESTRADIOL
     Indication: HYPOPITUITARISM
     Dosage: 1 DF, QD
     Route: 048
     Dates: start: 201306
  6. LYRICA [Concomitant]
     Active Substance: PREGABALIN
     Indication: FACIAL PAIN
     Route: 048
     Dates: start: 201406
  7. SOM230 [Suspect]
     Active Substance: PASIREOTIDE
     Dosage: 60 MG, PER MONTH
     Route: 065
  8. JANUVIA [Concomitant]
     Active Substance: SITAGLIPTIN PHOSPHATE
     Indication: PRODUCT USED FOR UNKNOWN INDICATION
     Route: 065
  9. THYROXINE [Concomitant]
     Active Substance: LEVOTHYROXINE
     Indication: HYPOPITUITARISM
     Dosage: 100 MG, QD
     Route: 048
     Dates: start: 201402

REACTIONS (10)
  - Hyperglycaemia [Recovering/Resolving]
  - Vomiting [Recovered/Resolved]
  - Glycosylated haemoglobin increased [Not Recovered/Not Resolved]
  - Infection [Unknown]
  - Fatigue [Unknown]
  - Diabetes mellitus [Recovering/Resolving]
  - Polyuria [Unknown]
  - Dry mouth [Unknown]
  - Polydipsia [Unknown]
  - Nausea [Recovered/Resolved]

NARRATIVE: CASE EVENT DATE: 20140430
